FAERS Safety Report 10149635 (Version 2)
Quarter: 2014Q2

REPORT INFORMATION
  Report Type: Spontaneous
  Country: GB (occurrence: GB)
  Receive Date: 20140502
  Receipt Date: 20140502
  Transmission Date: 20141212
  Serious: Yes (Death)
  Sender: FDA-Public Use
  Company Number: PHBS1999GB01025

PATIENT
  Age: 69 Year
  Sex: Female
  Weight: 51 kg

DRUGS (9)
  1. COMTESS (ENTACAPONE) [Suspect]
     Indication: PARKINSON^S DISEASE
     Dosage: 200 MG, TID
     Route: 048
     Dates: start: 19981224
  2. PROPRANOLOL (PROPRANOLOL) [Concomitant]
     Dosage: 160 MG, QD
  3. PERGOLIDE (PERGOLIDE) [Concomitant]
     Indication: PARKINSON^S DISEASE
     Dosage: 4 MG, QD
  4. SINEMET (SINEMET) [Concomitant]
     Indication: PARKINSON^S DISEASE
     Dosage: 3 UKN, QD
     Route: 048
  5. PAROXETINE (PAROXETINE) [Concomitant]
     Dosage: 20 MG, DAILY
  6. OVESTIN ESTRIOL (ESTRIOL) [Concomitant]
     Dosage: UNK UKN, UNK
     Route: 003
  7. DETRUSITOL TOLERODINE (TOLTERODINE L-TARTRATE) [Concomitant]
     Dosage: 4 MG, BID
  8. ADCORTYL (TRIAMCINOLONE ACETONIDE) [Concomitant]
     Dosage: 3 UKN, QD
     Route: 061
  9. CEFACLOR (CEFACLOR) [Concomitant]
     Dosage: 750 MG, BID
     Route: 048

REACTIONS (2)
  - Myocardial infarction [Fatal]
  - Death [Fatal]
